FAERS Safety Report 25885959 (Version 1)
Quarter: 2025Q4

REPORT INFORMATION
  Report Type: Spontaneous
  Country: US (occurrence: None)
  Receive Date: 20251004
  Receipt Date: 20251004
  Transmission Date: 20260118
  Serious: Yes (Hospitalization)
  Sender: FDA-CTU
  Company Number: None

PATIENT
  Age: 62 Year
  Sex: Male

DRUGS (1)
  1. SEROSTIM [Suspect]
     Active Substance: SOMATROPIN
     Dosage: FREQUENCY : DAILY;?

REACTIONS (4)
  - Weight decreased [None]
  - COVID-19 [None]
  - Pneumonia [None]
  - Pharyngitis streptococcal [None]
